FAERS Safety Report 8601568 (Version 2)
Quarter: 2022Q3

REPORT INFORMATION
  Report Type: Spontaneous
  Country: US (occurrence: US)
  Receive Date: 20120606
  Receipt Date: 20220722
  Transmission Date: 20221027
  Serious: Yes (Other)
  Sender: FDA-Public Use
  Company Number: US-PFIZER INC-2012132670

PATIENT
  Age: 79 Year
  Sex: Male
  Weight: 80 kg

DRUGS (7)
  1. RELPAX [Suspect]
     Active Substance: ELETRIPTAN HYDROBROMIDE
     Indication: Headache
     Dosage: 40 MG, AS NEEDED
     Dates: start: 20120419
  2. RELPAX [Suspect]
     Active Substance: ELETRIPTAN HYDROBROMIDE
     Indication: Migraine
     Dosage: 1 DF, AS NEEDED (MAY REPEAT IN 2 HOURS IF FIRST DOSE PROVIDED SOME RELIEF)
     Route: 048
  3. TRAMADOL HCL [Suspect]
     Active Substance: TRAMADOL HYDROCHLORIDE
     Indication: Headache
     Dosage: 50MG FOUR TIMES A DAY AS NEEDED
     Dates: start: 201205
  4. VICODIN [Suspect]
     Active Substance: ACETAMINOPHEN\HYDROCODONE BITARTRATE
     Indication: Headache
     Dosage: 2X^500MG^ FOUR TIMES A DAY AS NEEDED
     Dates: start: 201205
  5. TYLENOL [Suspect]
     Active Substance: ACETAMINOPHEN
     Indication: Headache
     Dosage: UNK
     Dates: start: 201205
  6. HYDROCHLOROTHIAZIDE [Concomitant]
     Active Substance: HYDROCHLOROTHIAZIDE
     Indication: Blood pressure abnormal
     Dosage: 25 MG, DAILY
  7. FISH OIL [Concomitant]
     Active Substance: FISH OIL
     Dosage: UNK

REACTIONS (5)
  - Fall [Unknown]
  - Limb injury [Not Recovered/Not Resolved]
  - Headache [Unknown]
  - Drug ineffective [Unknown]
  - Somnolence [Unknown]

NARRATIVE: CASE EVENT DATE: 20120501
